FAERS Safety Report 19057797 (Version 1)
Quarter: 2021Q1

REPORT INFORMATION
  Report Type: Spontaneous
  Country: US (occurrence: US)
  Receive Date: 20210325
  Receipt Date: 20210325
  Transmission Date: 20210420
  Serious: Yes (Hospitalization)
  Sender: FDA-Public Use
  Company Number: None

PATIENT
  Age: 58 Year
  Sex: Female
  Weight: 87 kg

DRUGS (1)
  1. SULFA/TRIMETHOPRIM [Suspect]
     Active Substance: SULFAMETHOXAZOLE\TRIMETHOPRIM
     Indication: SINUSITIS
     Dates: start: 20200211, end: 20200216

REACTIONS (6)
  - Rash [None]
  - Seizure [None]
  - Urticaria [None]
  - Meningitis bacterial [None]
  - Leukocytosis [None]
  - Pyrexia [None]

NARRATIVE: CASE EVENT DATE: 20200218
